FAERS Safety Report 4302867-4 (Version None)
Quarter: 2004Q1

REPORT INFORMATION
  Report Type: 
  Country: None (occurrence: None)
  Receive Date: 20040223
  Receipt Date: 20040223
  Transmission Date: 20041129
  Serious: Yes (Hospitalization)
  Sender: FDA-Public Use
  Company Number: None

PATIENT
  Age: 73 Year
  Sex: Female
  Weight: 76.2 kg

DRUGS (1)
  1. AMIODARONE HCL [Suspect]
     Indication: ARRHYTHMIA
     Dosage: 200 MG DAILY ORAL
     Route: 048
     Dates: start: 20030801, end: 20031201

REACTIONS (5)
  - CHILLS [None]
  - DRUG TOXICITY [None]
  - DYSPNOEA [None]
  - PNEUMONIA [None]
  - PYREXIA [None]
